FAERS Safety Report 15328573 (Version 2)
Quarter: 2019Q2

REPORT INFORMATION
  Report Type: Spontaneous
  Country: BR (occurrence: BR)
  Receive Date: 20180829
  Receipt Date: 20190625
  Transmission Date: 20190711
  Serious: Yes (Other)
  Sender: FDA-Public Use
  Company Number: BR-REGENERON PHARMACEUTICALS, INC.-2018-31104

PATIENT

DRUGS (1)
  1. EYLEA [Suspect]
     Active Substance: AFLIBERCEPT
     Indication: NEOVASCULAR AGE-RELATED MACULAR DEGENERATION
     Dosage: 1 DF, ONCE
     Route: 031
     Dates: start: 2016, end: 2016

REACTIONS (4)
  - Injection site inflammation [Recovered/Resolved]
  - Visual acuity reduced [Recovered/Resolved]
  - Iridocyclitis [Recovered/Resolved]
  - Ocular procedural complication [Recovered/Resolved]

NARRATIVE: CASE EVENT DATE: 2016
